FAERS Safety Report 18296208 (Version 3)
Quarter: 2020Q4

REPORT INFORMATION
  Report Type: Spontaneous
  Country: US (occurrence: US)
  Receive Date: 20200922
  Receipt Date: 20201023
  Transmission Date: 20210113
  Serious: No
  Sender: FDA-Public Use
  Company Number: US-BIOGEN-2019BI00739149

PATIENT
  Age: 72 Year
  Sex: Female

DRUGS (4)
  1. AVONEX [Suspect]
     Active Substance: INTERFERON BETA-1A
     Route: 065
     Dates: start: 20150130
  2. AVONEX [Suspect]
     Active Substance: INTERFERON BETA-1A
  3. AVONEX [Suspect]
     Active Substance: INTERFERON BETA-1A
     Indication: MULTIPLE SCLEROSIS
     Route: 065
     Dates: start: 20021124
  4. AVONEX [Suspect]
     Active Substance: INTERFERON BETA-1A

REACTIONS (3)
  - Product dose omission issue [Not Recovered/Not Resolved]
  - Injection site haemorrhage [Unknown]
  - Skin wound [Unknown]

NARRATIVE: CASE EVENT DATE: 20190514
